FAERS Safety Report 12139852 (Version 1)
Quarter: 2016Q1

REPORT INFORMATION
  Report Type: Other
  Country: TR (occurrence: TR)
  Receive Date: 20160303
  Receipt Date: 20160303
  Transmission Date: 20160526
  Serious: Yes (Hospitalization)
  Sender: FDA-Public Use
  Company Number: TR-JUBILANT GENERICS LIMITED-1048602

PATIENT
  Age: 87 Year
  Sex: Male

DRUGS (1)
  1. LEVOFLOXACIN. [Suspect]
     Active Substance: LEVOFLOXACIN

REACTIONS (2)
  - Fixed drug eruption [Recovered/Resolved]
  - Renal impairment [None]

NARRATIVE: CASE EVENT DATE: 20160222
